FAERS Safety Report 5578945-9 (Version None)
Quarter: 2008Q1

REPORT INFORMATION
  Report Type: 
  Country: None (occurrence: None)
  Receive Date: 20080102
  Receipt Date: 20071221
  Transmission Date: 20080703
  Serious: Yes (Disabling, Other)
  Sender: FDA-Public Use
  Company Number: GB-ASTRAZENECA-2007GB02628

PATIENT
  Age: 41 Year
  Sex: Male
  Weight: 78 kg

DRUGS (2)
  1. OMEPRAZOLE [Suspect]
     Route: 048
  2. PROTON PUMP INHIBITOR [Concomitant]
     Dates: start: 19980101

REACTIONS (2)
  - BLOOD CREATINE PHOSPHOKINASE INCREASED [None]
  - MYALGIA [None]
